FAERS Safety Report 7719704-8 (Version None)
Quarter: 2011Q3

REPORT INFORMATION
  Report Type: 
  Country: None (occurrence: None)
  Receive Date: 20110830
  Receipt Date: 20090709
  Transmission Date: 20111222
  Serious: Yes (Hospitalization, Other)
  Sender: FDA-Public Use
  Company Number: PHHY2010TW25859

PATIENT
  Sex: Male

DRUGS (2)
  1. GLEEVEC [Suspect]
     Indication: GASTROINTESTINAL STROMAL TUMOUR
     Dosage: 400 MG, UNK
     Route: 048
     Dates: start: 20100501
  2. SUTENT [Suspect]
     Indication: GASTROINTESTINAL STROMAL TUMOUR
     Dosage: 4 DF, DAILY
     Route: 048
     Dates: start: 20100501

REACTIONS (4)
  - CEREBROVASCULAR ACCIDENT [None]
  - ASTHENIA [None]
  - RENAL NEOPLASM [None]
  - DIARRHOEA [None]
